FAERS Safety Report 9397281 (Version 2)
Quarter: 2014Q1

REPORT INFORMATION
  Report Type: Spontaneous
  Country: IT (occurrence: IT)
  Receive Date: 20130712
  Receipt Date: 20140106
  Transmission Date: 20141002
  Serious: Yes (Hospitalization)
  Sender: FDA-Public Use
  Company Number: IT-VERTEX PHARMACEUTICALS INC-2013-007870

PATIENT
  Age: 48 Year
  Sex: Male

DRUGS (3)
  1. INCIVO [Suspect]
     Indication: HEPATIC CIRRHOSIS
     Dosage: 2250 MG, QD
     Route: 048
     Dates: start: 20130422, end: 20130520
  2. COPEGUS [Concomitant]
     Indication: HEPATIC CIRRHOSIS
     Dosage: DOSAGE FORM: TABLETS
     Route: 048
     Dates: start: 20130422, end: 20130527
  3. PEGASYS [Concomitant]
     Indication: HEPATIC CIRRHOSIS
     Dosage: DOSAGE FORM: INJECTION
     Route: 058
     Dates: start: 20130422, end: 20130527

REACTIONS (3)
  - Impetigo [Unknown]
  - Dermatitis bullous [Recovered/Resolved]
  - Rash [Recovered/Resolved]
